FAERS Safety Report 6387574-9 (Version None)
Quarter: 2009Q3

REPORT INFORMATION
  Report Type: 
  Country: None (occurrence: None)
  Receive Date: 20090930
  Receipt Date: 20090924
  Transmission Date: 20100115
  Serious: Yes (Other)
  Sender: FDA-Public Use
  Company Number: CHPA2009US19219

PATIENT
  Age: 35 Year
  Sex: Female

DRUGS (2)
  1. ASCRIPTIN BUFFERED (NCH) (ACETYLSALICYLIC ACID) TABLET [Suspect]
     Indication: PAIN
     Dosage: 2 TAB, ONCE OR THREE TIMES A DAY, ORAL
     Route: 048
  2. AMRIX [Concomitant]

REACTIONS (2)
  - INTENTIONAL DRUG MISUSE [None]
  - MYOCARDIAL INFARCTION [None]
